FAERS Safety Report 23220217 (Version 2)
Quarter: 2024Q1

REPORT INFORMATION
  Report Type: Spontaneous
  Country: US (occurrence: US)
  Receive Date: 20231123
  Receipt Date: 20240119
  Transmission Date: 20240410
  Serious: No
  Sender: FDA-Public Use
  Company Number: US-BRISTOL-MYERS SQUIBB COMPANY-2023-161873

PATIENT
  Age: 86 Year
  Sex: Male
  Weight: 77.11 kg

DRUGS (4)
  1. ELIQUIS [Suspect]
     Active Substance: APIXABAN
     Indication: Atrial fibrillation
  2. ELIQUIS [Suspect]
     Active Substance: APIXABAN
     Indication: Arrhythmia
  3. VYNDAMAX [Suspect]
     Active Substance: TAFAMIDIS
     Indication: Cardiac amyloidosis
     Dates: start: 202309
  4. FUROSEMIDE [Concomitant]
     Active Substance: FUROSEMIDE
     Indication: Weight decreased

REACTIONS (2)
  - Hypoacusis [Unknown]
  - Sleep disorder [Unknown]
